FAERS Safety Report 15159189 (Version 1)
Quarter: 2018Q3

REPORT INFORMATION
  Report Type: Spontaneous
  Country: IT (occurrence: IT)
  Receive Date: 20180718
  Receipt Date: 20180718
  Transmission Date: 20181010
  Serious: Yes (Hospitalization)
  Sender: FDA-Public Use
  Company Number: IT-MYLANLABS-2018M1050744

PATIENT
  Age: 57 Year
  Sex: Female

DRUGS (5)
  1. FOLINIC ACID [Suspect]
     Active Substance: LEUCOVORIN
     Indication: ADENOCARCINOMA
     Dosage: 200 MG/M2, UNK
  2. OXALIPLATIN. [Suspect]
     Active Substance: OXALIPLATIN
     Indication: ADENOCARCINOMA
     Dosage: 600 MG/M2, UNK 22 HRS
     Route: 042
  3. METRONIDAZOLE. [Suspect]
     Active Substance: METRONIDAZOLE
     Indication: PRODUCT USED FOR UNKNOWN INDICATION
     Dosage: UNK
  4. OXALIPLATIN. [Suspect]
     Active Substance: OXALIPLATIN
     Dosage: 85 MG/M2, UNK
  5. OXALIPLATIN. [Suspect]
     Active Substance: OXALIPLATIN
     Dosage: 400 MG/M2, UNK
     Route: 040

REACTIONS (8)
  - Hyperbilirubinaemia [Recovered/Resolved]
  - Haptoglobin decreased [Recovered/Resolved]
  - Haemolytic anaemia [Recovered/Resolved]
  - Reticulocytosis [Recovered/Resolved]
  - Asthenia [Recovered/Resolved]
  - Red cell fragmentation syndrome [Recovered/Resolved]
  - Disorientation [Recovered/Resolved]
  - Abdominal distension [Recovered/Resolved]
